FAERS Safety Report 9287175 (Version 1)
Quarter: 2013Q2

REPORT INFORMATION
  Report Type: Spontaneous
  Country: IN (occurrence: IN)
  Receive Date: 20130513
  Receipt Date: 20130513
  Transmission Date: 20140414
  Serious: Yes (Hospitalization, Other)
  Sender: FDA-Public Use
  Company Number: IN-ELI_LILLY_AND_COMPANY-IN201305000649

PATIENT
  Age: 60 Year
  Sex: Male

DRUGS (5)
  1. OLANZAPINE [Suspect]
     Indication: SCHIZOPHRENIA, PARANOID TYPE
     Dosage: 20 MG, QD
     Dates: start: 2008
  2. TRIFLUOPERAZINE [Concomitant]
     Indication: SCHIZOPHRENIA, PARANOID TYPE
  3. RISPERIDONE [Concomitant]
     Indication: SCHIZOPHRENIA, PARANOID TYPE
     Dosage: UNK
  4. TRIHEXYPHENIDYL [Concomitant]
     Indication: SCHIZOPHRENIA, PARANOID TYPE
     Dosage: 4 MG, QD
  5. TRIHEXYPHENIDYL [Concomitant]
     Dosage: 6 MG, QD

REACTIONS (2)
  - Parkinsonism [Recovering/Resolving]
  - Psychotic disorder [Unknown]
